FAERS Safety Report 7383685-X (Version None)
Quarter: 2011Q1

REPORT INFORMATION
  Report Type: 
  Country: None (occurrence: None)
  Receive Date: 20110325
  Receipt Date: 20110325
  Transmission Date: 20110831
  Serious: Yes (Hospitalization)
  Sender: FDA-Public Use
  Company Number: None

PATIENT
  Age: 59 Year
  Sex: Male
  Weight: 96 kg

DRUGS (1)
  1. ETODOLAC [Suspect]
     Indication: HEADACHE
     Dosage: 400 MG BID PO
     Route: 048
     Dates: start: 20080125, end: 20101220

REACTIONS (5)
  - GASTRIC ULCER [None]
  - HAEMOGLOBIN DECREASED [None]
  - EROSIVE OESOPHAGITIS [None]
  - SYNCOPE [None]
  - GASTRIC HAEMORRHAGE [None]
